FAERS Safety Report 13140268 (Version 1)
Quarter: 2017Q1

REPORT INFORMATION
  Report Type: Spontaneous
  Country: US (occurrence: US)
  Receive Date: 20170123
  Receipt Date: 20170123
  Transmission Date: 20170428
  Serious: No
  Sender: FDA-Public Use
  Company Number: US-UNITED THERAPEUTICS-UNT-2016-017573

PATIENT
  Sex: Male
  Weight: 96.78 kg

DRUGS (4)
  1. REMODULIN [Suspect]
     Active Substance: TREPROSTINIL
     Indication: PULMONARY ARTERIAL HYPERTENSION
     Dosage: 0.055 ?G/KG AT 0.032 ML/HR, Q72H
     Route: 058
     Dates: start: 20140224
  2. REMODULIN [Suspect]
     Active Substance: TREPROSTINIL
     Dosage: 2.6 ML EVERY 72 HOURS (5MG/ML)
     Route: 058
  3. REMODULIN [Suspect]
     Active Substance: TREPROSTINIL
     Dosage: 0.052 ?G/KG, CONTINUING
     Route: 058
  4. REMODULIN [Suspect]
     Active Substance: TREPROSTINIL
     Dosage: 0.055 ?G/KG, CONTINUING
     Route: 058

REACTIONS (1)
  - Pain in extremity [Unknown]

NARRATIVE: CASE EVENT DATE: 201611
